FAERS Safety Report 17979589 (Version 1)
Quarter: 2020Q3

REPORT INFORMATION
  Report Type: Spontaneous
  Country: FR (occurrence: FR)
  Receive Date: 20200703
  Receipt Date: 20200703
  Transmission Date: 20201103
  Serious: Yes (Other)
  Sender: FDA-Public Use
  Company Number: FR-SEPTODONT-202005818

PATIENT
  Age: 48 Year
  Sex: Male
  Weight: 95 kg

DRUGS (1)
  1. SEPTANEST 1/100.000 [Suspect]
     Active Substance: ARTICAINE HYDROCHLORIDE\EPINEPHRINE HYDROCHLORIDE
     Indication: DENTAL LOCAL ANAESTHESIA
     Dosage: CLEANED CARIES 36 AND PUT COMPOSITE
     Route: 004
     Dates: start: 20200529

REACTIONS (3)
  - Glossodynia [Recovering/Resolving]
  - Dysgeusia [Recovering/Resolving]
  - Tongue paralysis [Recovering/Resolving]

NARRATIVE: CASE EVENT DATE: 20200529
